FAERS Safety Report 4686095-9 (Version None)
Quarter: 2005Q2

REPORT INFORMATION
  Report Type: 
  Country: None (occurrence: None)
  Receive Date: 20050606
  Receipt Date: 20050527
  Transmission Date: 20051028
  Serious: Yes (Hospitalization, Other)
  Sender: FDA-Public Use
  Company Number: ITWYE562906APR05

PATIENT
  Age: 29 Year
  Sex: Female

DRUGS (1)
  1. GEMTUZUMAB OZOGAMICIN (GEMTUZUMAB OZOGAMICIN, INJECTION) [Suspect]
     Indication: ACUTE PROMYELOCYTIC LEUKAEMIA
     Dosage: 6 MG 1X PER 1 DAY INTRAVENOUS
     Route: 042
     Dates: start: 20050319, end: 20050319

REACTIONS (5)
  - NEUTROPENIA [None]
  - PYREXIA [None]
  - SEPSIS [None]
  - STAPHYLOCOCCAL INFECTION [None]
  - STOMATITIS [None]
